FAERS Safety Report 5678920-X (Version None)
Quarter: 2008Q1

REPORT INFORMATION
  Report Type: 
  Country: None (occurrence: None)
  Receive Date: 20080325
  Receipt Date: 20080313
  Transmission Date: 20080703
  Serious: Yes (Other)
  Sender: FDA-Public Use
  Company Number: PHBS2008MX03355

PATIENT
  Sex: Female

DRUGS (1)
  1. TOFRANIL [Suspect]

REACTIONS (2)
  - BRAIN INJURY [None]
  - MYOCLONUS [None]
